FAERS Safety Report 8132689-8 (Version None)
Quarter: 2012Q1

REPORT INFORMATION
  Report Type: 
  Country: None (occurrence: None)
  Receive Date: 20120213
  Receipt Date: 20120210
  Transmission Date: 20120608
  Serious: No
  Sender: FDA-Public Use
  Company Number: US-PFIZER INC-2012037291

PATIENT
  Sex: Female
  Weight: 90.703 kg

DRUGS (4)
  1. TRILEPTAL [Concomitant]
     Indication: CONVULSION
     Dosage: 400 MG, 2X/DAY
     Route: 048
  2. LIPITOR [Suspect]
     Indication: MYOCARDIAL INFARCTION
     Dosage: 80 MG, DAILY
     Route: 048
     Dates: start: 20120102, end: 20120105
  3. SYNTHROID [Concomitant]
     Indication: THYROID DISORDER
     Dosage: 1 UG, DAILY
     Route: 048
  4. PROZAC [Concomitant]
     Indication: DEPRESSION
     Dosage: 20 MG, DAILY

REACTIONS (3)
  - BLOOD SODIUM DECREASED [None]
  - MUSCULAR WEAKNESS [None]
  - BLOOD MAGNESIUM DECREASED [None]
